FAERS Safety Report 6455968-9 (Version None)
Quarter: 2009Q4

REPORT INFORMATION
  Report Type: 
  Country: None (occurrence: None)
  Receive Date: 20091125
  Receipt Date: 20091106
  Transmission Date: 20100525
  Serious: Yes (Other)
  Sender: FDA-Public Use
  Company Number: US-JNJFOC-20091102775

PATIENT
  Age: 13 Year
  Sex: Female
  Weight: 30.4 kg

DRUGS (9)
  1. REMICADE [Suspect]
     Route: 042
     Dates: start: 20080201, end: 20090424
  2. REMICADE [Suspect]
     Indication: JUVENILE ARTHRITIS
     Route: 042
     Dates: start: 20080201, end: 20090424
  3. METHOTREXATE [Concomitant]
     Route: 058
  4. FOLIC ACID [Concomitant]
     Route: 048
  5. VITAMIN D [Concomitant]
     Route: 048
  6. COUMADIN [Concomitant]
     Route: 048
  7. DIGOXIN [Concomitant]
     Dosage: DURATION SINCE BIRTH
     Route: 048
  8. ENALAPRIL MALEATE [Concomitant]
     Route: 048
  9. LEVOTHYROXINE SODIUM [Concomitant]

REACTIONS (3)
  - HEADACHE [None]
  - INFUSION RELATED REACTION [None]
  - VOMITING [None]
